FAERS Safety Report 17943504 (Version 2)
Quarter: 2020Q3

REPORT INFORMATION
  Report Type: Spontaneous
  Country: US (occurrence: US)
  Receive Date: 20200625
  Receipt Date: 20200717
  Transmission Date: 20201103
  Serious: Yes (Other)
  Sender: FDA-Public Use
  Company Number: US-BAYER-2020-125870

PATIENT
  Age: 38 Year
  Sex: Female
  Weight: 63.04 kg

DRUGS (2)
  1. MIRENA [Suspect]
     Active Substance: LEVONORGESTREL
     Indication: CONTRACEPTION
     Dosage: 20 ?G PER DAY CONTINUOUSLY
     Route: 015
     Dates: start: 2019, end: 20200622
  2. MIRENA [Suspect]
     Active Substance: LEVONORGESTREL
     Indication: MENORRHAGIA
     Dosage: 20 ?G PER DAY CONTINUOUSLY
     Route: 015
     Dates: start: 20200622, end: 20200622

REACTIONS (4)
  - Complication of device insertion [None]
  - Procedural haemorrhage [None]
  - Embedded device [None]
  - Medical device discomfort [None]

NARRATIVE: CASE EVENT DATE: 20200622
